FAERS Safety Report 5168297-0 (Version None)
Quarter: 2006Q4

REPORT INFORMATION
  Report Type: 
  Country: None (occurrence: None)
  Receive Date: 20061208
  Receipt Date: 20060130
  Transmission Date: 20070319
  Serious: Yes (Other)
  Sender: FDA-Public Use
  Company Number: GB-ROCHE-435202

PATIENT
  Age: 54 Year
  Sex: Female
  Weight: 98 kg

DRUGS (3)
  1. XENICAL [Suspect]
     Indication: OBESITY
     Route: 065
  2. XENICAL [Suspect]
     Route: 065
     Dates: start: 20050322
  3. FLUORODEX [Concomitant]

REACTIONS (5)
  - ABDOMINAL DISTENSION [None]
  - CONSTIPATION [None]
  - DIARRHOEA [None]
  - FAECES DISCOLOURED [None]
  - PHARMACEUTICAL PRODUCT COMPLAINT [None]
